FAERS Safety Report 16341551 (Version 4)
Quarter: 2019Q3

REPORT INFORMATION
  Report Type: Spontaneous
  Country: CA (occurrence: CA)
  Receive Date: 20190522
  Receipt Date: 20190923
  Transmission Date: 20191004
  Serious: Yes (Other)
  Sender: FDA-Public Use
  Company Number: CA-AUROBINDO-AUR-APL-2019-027424

PATIENT
  Sex: Female

DRUGS (4)
  1. PAROXETINE TABLET [Suspect]
     Active Substance: PAROXETINE
     Indication: PRODUCT USED FOR UNKNOWN INDICATION
     Dosage: UNK
     Route: 065
  2. CLONAZEPAM. [Suspect]
     Active Substance: CLONAZEPAM
     Indication: PRODUCT USED FOR UNKNOWN INDICATION
     Dosage: UNK
     Route: 065
  3. LUPRON DEPOT [Suspect]
     Active Substance: LEUPROLIDE ACETATE
     Indication: MENORRHAGIA
     Dosage: 3.75 MILLIGRAM
     Route: 030
  4. NAPROXEN SODIUM. [Suspect]
     Active Substance: NAPROXEN SODIUM
     Indication: PRODUCT USED FOR UNKNOWN INDICATION
     Dosage: UNK
     Route: 065

REACTIONS (16)
  - Constipation [Recovering/Resolving]
  - Feeling abnormal [Recovering/Resolving]
  - Fatigue [Recovering/Resolving]
  - Nervousness [Recovering/Resolving]
  - Hot flush [Recovering/Resolving]
  - Insomnia [Recovering/Resolving]
  - Loss of personal independence in daily activities [Recovering/Resolving]
  - Muscle spasms [Recovering/Resolving]
  - Depressed mood [Recovering/Resolving]
  - Depression [Recovering/Resolving]
  - Vision blurred [Recovering/Resolving]
  - Amnesia [Recovering/Resolving]
  - Hyperhidrosis [Recovering/Resolving]
  - Suicide attempt [Recovering/Resolving]
  - Anger [Recovering/Resolving]
  - Nausea [Recovering/Resolving]
